FAERS Safety Report 6259315-7 (Version None)
Quarter: 2009Q3

REPORT INFORMATION
  Report Type: 
  Country: None (occurrence: None)
  Receive Date: 20090707
  Receipt Date: 20090701
  Transmission Date: 20100115
  Serious: Yes (Death)
  Sender: FDA-Public Use
  Company Number: US-GILEAD-2009-0022903

PATIENT
  Sex: Female

DRUGS (17)
  1. LETAIRIS [Suspect]
     Indication: PULMONARY ARTERIAL HYPERTENSION
     Route: 048
  2. REVATIO [Concomitant]
  3. NORVASC [Concomitant]
  4. LISINOPRIL [Concomitant]
  5. FLUTICASONE [Concomitant]
  6. COMBIVENT [Concomitant]
  7. SPIRIVA [Concomitant]
  8. METHOTREXATE [Concomitant]
  9. PLAQUENIL [Concomitant]
  10. PRANDIN [Concomitant]
  11. FOLIC ACID [Concomitant]
  12. IBUPROFEN [Concomitant]
  13. DARVOCET [Concomitant]
  14. CALTRATE [Concomitant]
  15. VITAMIN B-12 [Concomitant]
  16. VITAMIN D [Concomitant]
  17. LOVAZA [Concomitant]

REACTIONS (1)
  - DEATH [None]
